FAERS Safety Report 9806955 (Version 2)
Quarter: 2014Q1

REPORT INFORMATION
  Report Type: Spontaneous
  Country: US (occurrence: US)
  Receive Date: 20140109
  Receipt Date: 20140321
  Transmission Date: 20141002
  Serious: Yes (Other)
  Sender: FDA-Public Use
  Company Number: US-PFIZER INC-2014004470

PATIENT
  Age: 53 Year
  Sex: Female
  Weight: 62.59 kg

DRUGS (3)
  1. LYRICA [Suspect]
     Indication: SPINAL CORD DISORDER
     Dosage: 75 MG, 2X/DAY
     Route: 048
     Dates: start: 2001
  2. CYMBALTA [Concomitant]
     Indication: DEPRESSION
     Dosage: 60 MG, DAILY
     Route: 048
  3. BUSPIRONE [Concomitant]
     Indication: ANXIETY
     Dosage: 20 MG, 3X/DAY

REACTIONS (6)
  - Fall [Unknown]
  - Paraparesis [Unknown]
  - Hypoaesthesia [Unknown]
  - Nerve compression [Unknown]
  - Nasopharyngitis [Unknown]
  - Muscle strain [Unknown]
